FAERS Safety Report 5332067-0 (Version None)
Quarter: 2007Q2

REPORT INFORMATION
  Report Type: 
  Country: None (occurrence: None)
  Receive Date: 20070306
  Receipt Date: 20060101
  Transmission Date: 20071010
  Serious: Yes (Other)
  Sender: FDA-Public Use
  Company Number: A03200600197

PATIENT

DRUGS (6)
  1. PLAVIX [Suspect]
     Indication: STENT PLACEMENT
     Dosage: ORAL
     Route: 048
  2. ASPIRIN [Suspect]
     Indication: STENT PLACEMENT
     Dosage: ORAL
     Route: 048
  3. SIROLIMUS - UNKNOWN - UNIT DOSE : UNKNOWN [Suspect]
     Indication: STENT PLACEMENT
     Dosage: INTRA-ARTERIAL
     Route: 013
  4. PACLITAXEL [Suspect]
     Indication: STENT PLACEMENT
     Dosage: INTRA-ARTERIAL
     Route: 013
  5. AGENTS ADMINISTERED DURING IMPLANTATION NOS - UNKNOWN - UNIT DOSE : UN [Suspect]
     Indication: STENT PLACEMENT
  6. NON DRUG COMPONENT OF DES NOS - UNIT DOSE : UNKNOWN [Suspect]
     Indication: STENT PLACEMENT
     Dosage: INTRA-ARTERIAL
     Route: 013

REACTIONS (1)
  - HYPERSENSITIVITY [None]
